FAERS Safety Report 11495930 (Version 1)
Quarter: 2015Q3

REPORT INFORMATION
  Report Type: Spontaneous
  Country: TR (occurrence: TR)
  Receive Date: 20150911
  Receipt Date: 20150911
  Transmission Date: 20151125
  Serious: Yes (Hospitalization, Other)
  Sender: FDA-Public Use
  Company Number: TR-GLAXOSMITHKLINE-TR2015GSK129675

PATIENT
  Age: 24 Year
  Sex: Female

DRUGS (1)
  1. VENTOLIN [Suspect]
     Active Substance: ALBUTEROL SULFATE
     Indication: PRODUCT USED FOR UNKNOWN INDICATION
     Dosage: 76 MG, UNK (4 MGX19)

REACTIONS (9)
  - Hypokalaemia [Unknown]
  - Ventricular fibrillation [Unknown]
  - Suicide attempt [Unknown]
  - Hyperglycaemia [Unknown]
  - Supraventricular tachycardia [Unknown]
  - Drug abuse [Unknown]
  - Loss of consciousness [Unknown]
  - Intentional overdose [Unknown]
  - Anxiety [Unknown]
